FAERS Safety Report 4449147-4 (Version None)
Quarter: 2004Q3

REPORT INFORMATION
  Report Type: 
  Country: None (occurrence: None)
  Receive Date: 20040910
  Receipt Date: 20040826
  Transmission Date: 20050211
  Serious: Yes (Hospitalization)
  Sender: FDA-Public Use
  Company Number: 2004-0007452

PATIENT

DRUGS (3)
  1. VIREAD [Suspect]
     Indication: HIV INFECTION
  2. DIDANOSINE [Concomitant]
  3. KALETRA [Concomitant]

REACTIONS (1)
  - RENAL TUBULAR DISORDER [None]
